APPROVED DRUG PRODUCT: HC #1
Active Ingredient: HYDROCORTISONE
Strength: 0.5%
Dosage Form/Route: CREAM;TOPICAL
Application: A080438 | Product #001
Applicant: BAYER PHARMACEUTICALS CORP
Approved: Approved Prior to Jan 1, 1982 | RLD: No | RS: No | Type: DISCN